FAERS Safety Report 11594681 (Version 1)
Quarter: 2015Q4

REPORT INFORMATION
  Report Type: Spontaneous
  Country: CA (occurrence: CA)
  Receive Date: 20151005
  Receipt Date: 20151005
  Transmission Date: 20160304
  Serious: Yes (Other)
  Sender: FDA-Public Use
  Company Number: PHHY2015CA118399

PATIENT
  Age: 3 Month

DRUGS (1)
  1. NADOLOL. [Suspect]
     Active Substance: NADOLOL
     Indication: HAEMANGIOMA
     Dosage: 1 MG/KG, PER DAY
     Route: 048

REACTIONS (3)
  - Lethargy [Unknown]
  - Peripheral coldness [Unknown]
  - Hypotension [Unknown]
